FAERS Safety Report 23019837 (Version 2)
Quarter: 2024Q1

REPORT INFORMATION
  Report Type: Spontaneous
  Country: GB (occurrence: GB)
  Receive Date: 20231003
  Receipt Date: 20240109
  Transmission Date: 20240410
  Serious: Yes (Hospitalization)
  Sender: FDA-Public Use
  Company Number: GB-MYLANLABS-2023M1073664

PATIENT
  Sex: Male

DRUGS (1)
  1. CLOZARIL [Suspect]
     Active Substance: CLOZAPINE
     Indication: Schizophrenia
     Dosage: UNK
     Route: 048
     Dates: start: 20191209

REACTIONS (7)
  - Localised infection [Unknown]
  - C-reactive protein increased [Unknown]
  - Tachycardia [Unknown]
  - Neutrophil count increased [Unknown]
  - Feeling abnormal [Unknown]
  - Somnolence [Unknown]
  - Therapy interrupted [Unknown]
